FAERS Safety Report 7437955-7 (Version None)
Quarter: 2011Q2

REPORT INFORMATION
  Report Type: 
  Country: None (occurrence: None)
  Receive Date: 20110426
  Receipt Date: 20110418
  Transmission Date: 20111010
  Serious: Yes (Hospitalization, Other)
  Sender: FDA-Public Use
  Company Number: TW-ELI_LILLY_AND_COMPANY-TW201102002924

PATIENT
  Sex: Female

DRUGS (6)
  1. NORVASC [Concomitant]
     Dosage: 5 MG, DAILY (1/D)
  2. ALIMTA [Suspect]
     Dates: end: 20110111
  3. TEMGESIC [Concomitant]
     Dosage: 0.2 G, 2/D
  4. BETALOC ZOK [Concomitant]
     Dosage: 100 MG, DAILY (1/D)
  5. STILNOX [Concomitant]
  6. ULTRACET [Concomitant]

REACTIONS (16)
  - INTESTINAL DILATATION [None]
  - SOFT TISSUE DISORDER [None]
  - LYMPH NODES SCAN ABNORMAL [None]
  - HAEMORRHAGE [None]
  - C-REACTIVE PROTEIN INCREASED [None]
  - ASCITES [None]
  - METASTASES TO PERITONEUM [None]
  - HAEMOGLOBIN DECREASED [None]
  - MALIGNANT PLEURAL EFFUSION [None]
  - ILEUS [None]
  - PLEURAL EFFUSION [None]
  - WHITE BLOOD CELL COUNT INCREASED [None]
  - PERITONEAL DISORDER [None]
  - PYREXIA [None]
  - PERITONEAL HAEMORRHAGE [None]
  - PERITONITIS [None]
